FAERS Safety Report 4896440-7 (Version None)
Quarter: 2006Q1

REPORT INFORMATION
  Report Type: 
  Country: None (occurrence: None)
  Receive Date: 20060131
  Receipt Date: 20020528
  Transmission Date: 20060701
  Serious: Yes (Hospitalization)
  Sender: FDA-Public Use
  Company Number: PHHO2002VE11125

PATIENT
  Age: 27 Year
  Sex: Male

DRUGS (1)
  1. ZELMAC / HTF 919A [Suspect]

REACTIONS (5)
  - ANAL FISSURE [None]
  - ANAL FISTULA EXCISION [None]
  - CONSTIPATION [None]
  - HAEMORRHAGE [None]
  - PAIN [None]
